FAERS Safety Report 4951224-6 (Version None)
Quarter: 2006Q1

REPORT INFORMATION
  Report Type: 
  Country: None (occurrence: None)
  Receive Date: 20060316
  Receipt Date: 20060102
  Transmission Date: 20060701
  Serious: Yes (Hospitalization)
  Sender: FDA-Public Use
  Company Number: 108669ISR

PATIENT
  Age: 71 Year
  Sex: Male

DRUGS (11)
  1. VINCRISTINE [Suspect]
     Indication: LYMPHOMA
     Dosage: 2 MILLIGRAM
     Route: 042
     Dates: start: 20051209, end: 20051211
  2. CYCLOPHOSPHAMIDE [Suspect]
     Indication: LYMPHOMA
     Dosage: 1.3 GRAM
     Route: 042
     Dates: start: 20051209, end: 20051209
  3. DOXORUBICIN HCL [Suspect]
     Indication: LYMPHOMA
     Dosage: 90 MILLIGRAM
     Route: 042
     Dates: start: 20051209, end: 20051209
  4. PREDNISOLONE SODIUM PHOSPHATE [Suspect]
     Indication: LYMPHOMA
     Dosage: 72 MILLIGRAM
     Route: 048
     Dates: start: 20051209, end: 20051211
  5. ONDANSETRON HYDROCHLORIDE [Concomitant]
  6. METOCLOPRAMIDE [Concomitant]
  7. ALBUMIN (HUMAN) [Concomitant]
  8. NEFOPAM HYDROCHLORIDE [Concomitant]
  9. CEFTRIAXONE SODIUM [Concomitant]
  10. ENOXAPARIN SODIUM [Concomitant]
  11. SODIUM POLYSTYRENE SULFONATE [Concomitant]

REACTIONS (9)
  - ACUTE PULMONARY OEDEMA [None]
  - CARDIOMEGALY [None]
  - CARDIOPULMONARY FAILURE [None]
  - GENERALISED OEDEMA [None]
  - MYOCARDIAL ISCHAEMIA [None]
  - PULMONARY HYPERTENSION [None]
  - PYREXIA [None]
  - VENTRICULAR DYSKINESIA [None]
  - VENTRICULAR HYPERTROPHY [None]
